FAERS Safety Report 8319425-7 (Version None)
Quarter: 2012Q2

REPORT INFORMATION
  Report Type: 
  Country: None (occurrence: None)
  Receive Date: 20120426
  Receipt Date: 20120426
  Transmission Date: 20120825
  Serious: Yes (Death)
  Sender: FDA-Public Use
  Company Number: None

PATIENT
  Age: 69 Year
  Sex: Female

DRUGS (13)
  1. MAGNESIUM OXIDE [Concomitant]
  2. METOPROLOL TARTRATE [Concomitant]
  3. ALPRAZOLAM [Suspect]
  4. VIMPAT [Suspect]
  5. ETODOLAC [Concomitant]
  6. MULTI-VITAMIN [Concomitant]
  7. ARICEPT [Concomitant]
  8. GRAPE SEED [Concomitant]
  9. KEPPRA [Suspect]
  10. KALETRA [Concomitant]
  11. DILANTIN [Concomitant]
  12. COMBIVIR [Concomitant]
  13. FERROUS SULFATE TAB [Concomitant]

REACTIONS (2)
  - TOXIC EPIDERMAL NECROLYSIS [None]
  - BLOOD PRESSURE INADEQUATELY CONTROLLED [None]
